FAERS Safety Report 9296093 (Version 2)
Quarter: 2013Q4

REPORT INFORMATION
  Report Type: Spontaneous
  Country: US (occurrence: US)
  Receive Date: 20130517
  Receipt Date: 20131030
  Transmission Date: 20140711
  Serious: Yes (Hospitalization)
  Sender: FDA-Public Use
  Company Number: US-B.I. PHARMACEUTICALS,INC./RIDGEFIELD-2013-BI-13381BP

PATIENT
  Age: 88 Year
  Sex: Female
  Weight: 61.23 kg

DRUGS (12)
  1. PRADAXA [Suspect]
     Indication: ANTICOAGULANT THERAPY
     Dosage: 300 MG
     Dates: start: 20110513, end: 20120416
  2. PRADAXA [Suspect]
     Indication: ATRIAL FIBRILLATION
  3. ALBUTEROL [Concomitant]
     Dosage: 0.125 MG
  4. LANOXIN [Concomitant]
     Dosage: 0.125 MG
  5. FISH OIL [Concomitant]
     Dosage: 2000 MG
  6. GLIPIZIDE [Concomitant]
     Dosage: 5 MG
  7. LASIX [Concomitant]
     Dosage: 40 MG
  8. LOSARTAN/HCTZ [Concomitant]
  9. METFORMIN [Concomitant]
     Dosage: 500 MG
  10. SPIRONOLACTONE [Concomitant]
     Dosage: 12.5 MG
  11. VITAMIN E [Concomitant]
  12. METOPROLOL [Concomitant]

REACTIONS (4)
  - Lower gastrointestinal haemorrhage [Recovered/Resolved]
  - Coagulopathy [Unknown]
  - Renal failure acute [Unknown]
  - Haemorrhagic anaemia [Unknown]
